FAERS Safety Report 8730149 (Version 2)
Quarter: 2012Q4

REPORT INFORMATION
  Report Type: Spontaneous
  Country: DE (occurrence: None)
  Receive Date: 20120731
  Receipt Date: 20120918
  Transmission Date: 20130627
  Serious: Yes (Other)
  Sender: FDA-Public Use
  Company Number: AUR-APL-2012-03175

PATIENT
  Age: 68 Year
  Sex: Male
  Weight: 90 kg

DRUGS (5)
  1. RAMIPRIL [Suspect]
     Indication: PRODUCT USED FOR UNKNOWN INDICATION
     Dosage: 2.5 MG (2.5 MG, 1 IN 1 D), ORAL
     Route: 048
     Dates: start: 201112, end: 201201
  2. SIMVASTATIN(SIMVASTATIN) [Concomitant]
  3. PANTOPRAZOLE(PANTOPRAZOLE) [Concomitant]
  4. BISOPROLOL(BISOPROLOL) [Concomitant]
  5. CLOPIDOGREL(CLOPIDOGREL) [Concomitant]

REACTIONS (1)
  - Lichenification [None]
